FAERS Safety Report 18348018 (Version 3)
Quarter: 2020Q4

REPORT INFORMATION
  Report Type: Spontaneous
  Country: IN (occurrence: IN)
  Receive Date: 20201006
  Receipt Date: 20201204
  Transmission Date: 20210114
  Serious: Yes (Hospitalization, Other)
  Sender: FDA-Public Use
  Company Number: IN-MACLEODS PHARMACEUTICALS US LTD-MAC2020028266

PATIENT

DRUGS (5)
  1. TENOFOVIR [Suspect]
     Active Substance: TENOFOVIR
     Indication: HIV INFECTION
     Dosage: UNK
     Route: 065
  2. LAMIVUDINE. [Concomitant]
     Active Substance: LAMIVUDINE
     Indication: HIV INFECTION
     Dosage: UNK
     Route: 065
  3. RITONAVIR. [Interacting]
     Active Substance: RITONAVIR
     Indication: HIV INFECTION
     Dosage: UNK
     Route: 065
  4. ATAZANAVIR. [Concomitant]
     Active Substance: ATAZANAVIR
     Indication: HIV INFECTION
     Dosage: UNK
     Route: 065
  5. DICLOFENAC [Interacting]
     Active Substance: DICLOFENAC
     Indication: PRODUCT USED FOR UNKNOWN INDICATION
     Dosage: 50 MG, INTERMITTENTLY OVER THE PREVIOUS 2 MONTHS
     Route: 065

REACTIONS (15)
  - Albuminuria [Recovered/Resolved]
  - Glycosuria [Recovered/Resolved]
  - Weight decreased [Unknown]
  - Gait disturbance [Recovering/Resolving]
  - Myalgia [Recovering/Resolving]
  - Drug interaction [Recovering/Resolving]
  - Fatigue [Unknown]
  - Nephropathy toxic [Recovered/Resolved]
  - Decreased appetite [Recovering/Resolving]
  - Femoral neck fracture [Unknown]
  - Pathological fracture [Recovering/Resolving]
  - Renal tubular acidosis [Recovered/Resolved]
  - Myelosuppression [Unknown]
  - Impaired quality of life [Recovering/Resolving]
  - Musculoskeletal toxicity [Recovering/Resolving]
